FAERS Safety Report 20337107 (Version 2)
Quarter: 2022Q1

REPORT INFORMATION
  Report Type: Spontaneous
  Country: US (occurrence: None)
  Receive Date: 20220114
  Receipt Date: 20220309
  Transmission Date: 20220423
  Serious: No
  Sender: FDA-Public Use
  Company Number: 2022A021630

PATIENT
  Sex: Male

DRUGS (7)
  1. BYDUREON [Suspect]
     Active Substance: EXENATIDE
     Indication: Type 2 diabetes mellitus
     Route: 065
  2. BYDUREON BCISE [Suspect]
     Active Substance: EXENATIDE
     Indication: Type 2 diabetes mellitus
     Route: 065
  3. METFORMIN [Concomitant]
     Active Substance: METFORMIN HYDROCHLORIDE
     Dosage: BID
  4. GEMFIBROZIL [Concomitant]
     Active Substance: GEMFIBROZIL
     Dosage: BID
  5. ATORVASTATIN [Concomitant]
     Active Substance: ATORVASTATIN
     Dosage: DAILY
  6. JANUVIA [Concomitant]
     Active Substance: SITAGLIPTIN PHOSPHATE
     Dosage: DAILY
  7. INVOKANA [Concomitant]
     Active Substance: CANAGLIFLOZIN
     Dosage: DAILY

REACTIONS (7)
  - Glycosylated haemoglobin abnormal [Unknown]
  - Blood glucose abnormal [Unknown]
  - Injection site injury [Unknown]
  - Injection site haemorrhage [Unknown]
  - Injection site pain [Unknown]
  - Wrong technique in product usage process [Unknown]
  - Incorrect dose administered by device [Unknown]
